FAERS Safety Report 9835665 (Version 1)
Quarter: 2014Q1

REPORT INFORMATION
  Report Type: Spontaneous
  Country: FR (occurrence: FR)
  Receive Date: 20140122
  Receipt Date: 20140122
  Transmission Date: 20141002
  Serious: Yes (Other)
  Sender: FDA-Public Use
  Company Number: FR-ACTAVIS-2014-00278

PATIENT
  Age: 30 Year
  Sex: Female

DRUGS (3)
  1. MORPHINE (UNKNOWN) [Suspect]
     Indication: SPINAL ANAESTHESIA
     Dosage: 50 ?G,SINGLE
     Route: 037
  2. SUFENTANIL (UNKNOWN) [Suspect]
     Indication: SPINAL ANAESTHESIA
     Dosage: 5 ?G,SINGLE
     Route: 037
  3. BUPIVACAINE [Concomitant]
     Indication: SPINAL ANAESTHESIA
     Dosage: 10 MG, SINGLE
     Route: 037

REACTIONS (3)
  - Hypothermia [Recovered/Resolved]
  - Maternal exposure during delivery [Recovered/Resolved]
  - Nausea [Unknown]
